FAERS Safety Report 20496411 (Version 1)
Quarter: 2022Q1

REPORT INFORMATION
  Report Type: Spontaneous
  Country: US (occurrence: None)
  Receive Date: 20220221
  Receipt Date: 20220221
  Transmission Date: 20220423
  Serious: No
  Sender: FDA-Public Use
  Company Number: 2022A062689

PATIENT
  Sex: Female
  Weight: 78 kg

DRUGS (1)
  1. PULMICORT FLEXHALER [Suspect]
     Active Substance: BUDESONIDE
     Indication: COVID-19
     Dosage: 180 MCG, 2 INHALATIONS TWICE A DAY
     Route: 055
     Dates: start: 20220103

REACTIONS (3)
  - Oxygen saturation decreased [Unknown]
  - Off label use [Unknown]
  - Device malfunction [Unknown]
